FAERS Safety Report 9888645 (Version 8)
Quarter: 2014Q2

REPORT INFORMATION
  Report Type: Report from Study
  Country: US (occurrence: US)
  Receive Date: 20140211
  Receipt Date: 20140422
  Transmission Date: 20141212
  Serious: Yes (Hospitalization)
  Sender: FDA-Public Use
  Company Number: US-ACTELION-A-US2013-93156

PATIENT
  Age: 51 Year
  Sex: Male
  Weight: 121.9 kg

DRUGS (9)
  1. VELETRI [Suspect]
     Indication: PORTOPULMONARY HYPERTENSION
     Dosage: 22 NG/KG, PER MIN
     Route: 042
     Dates: start: 20131127, end: 20140308
  2. VELETRI [Suspect]
     Dosage: 20 UNK, UNK
     Route: 042
     Dates: start: 20131206
  3. LETAIRIS [Suspect]
     Dosage: 10 MG, QD
     Route: 048
     Dates: start: 20130508
  4. REMODULIN [Concomitant]
  5. LANTUS [Concomitant]
  6. PEPCID [Concomitant]
     Dosage: 20 MG, UNK
  7. LACTULOSE [Concomitant]
     Dosage: 10 G, UNK
  8. FUROSEMIDE [Concomitant]
     Dosage: 60 MG, UNK
  9. VITAMIN D [Concomitant]

REACTIONS (22)
  - Liver disorder [Unknown]
  - Condition aggravated [Unknown]
  - Renal failure chronic [Unknown]
  - Nutritional condition abnormal [Unknown]
  - Ascites [Unknown]
  - Abdominal distension [Unknown]
  - Abdominal cavity drainage [Unknown]
  - Muscle atrophy [Unknown]
  - Nausea [Recovered/Resolved]
  - Headache [Recovered/Resolved]
  - Oedema [Unknown]
  - Fatigue [Not Recovered/Not Resolved]
  - Catheter site inflammation [Unknown]
  - Hypotension [Unknown]
  - Heart rate increased [Unknown]
  - Decreased appetite [Unknown]
  - Malaise [Unknown]
  - Weight decreased [Unknown]
  - Back pain [Unknown]
  - Myalgia [Unknown]
  - Arthralgia [Unknown]
  - Joint stiffness [Unknown]
